FAERS Safety Report 5537692-X (Version None)
Quarter: 2007Q4

REPORT INFORMATION
  Report Type: 
  Country: None (occurrence: None)
  Receive Date: 20071207
  Receipt Date: 20071203
  Transmission Date: 20080405
  Serious: Yes (Life-Threatening)
  Sender: FDA-Public Use
  Company Number: JP-JNJFOC-20071110284

PATIENT
  Sex: Female

DRUGS (5)
  1. DORIBAX [Suspect]
     Indication: MEDIASTINITIS
     Route: 041
  2. DORIBAX [Suspect]
     Indication: PNEUMONIA
     Route: 041
  3. MEROPENEM [Concomitant]
     Indication: ANTIBIOTIC PROPHYLAXIS
     Route: 065
  4. DOPAMINE HYDROCHLORIDE [Concomitant]
     Indication: BLOOD PRESSURE MANAGEMENT
     Route: 041
  5. DIPRIVAN [Concomitant]
     Indication: SEDATION
     Route: 041

REACTIONS (3)
  - BLOOD PRESSURE DECREASED [None]
  - BLOOD PRESSURE INCREASED [None]
  - HEART RATE INCREASED [None]
